FAERS Safety Report 23470292 (Version 1)
Quarter: 2024Q1

REPORT INFORMATION
  Report Type: Report from Study
  Country: CA (occurrence: CA)
  Receive Date: 20240202
  Receipt Date: 20240202
  Transmission Date: 20240410
  Serious: Yes (Other)
  Sender: FDA-Public Use
  Company Number: CA-SAMSUNG BIOEPIS-SB-2024-03522

PATIENT
  Age: 67 Year
  Sex: Male

DRUGS (1)
  1. RENFLEXIS [Suspect]
     Active Substance: INFLIXIMAB-ABDA
     Indication: Ankylosing spondylitis
     Dosage: INJECTION, POWDER FOR SOLUTION
     Route: 042
     Dates: start: 20230817

REACTIONS (1)
  - Oroantral fistula [Recovering/Resolving]

NARRATIVE: CASE EVENT DATE: 20240110
